FAERS Safety Report 4641038-9 (Version None)
Quarter: 2005Q2

REPORT INFORMATION
  Report Type: 
  Country: None (occurrence: None)
  Receive Date: 20050419
  Receipt Date: 20050419
  Transmission Date: 20051028
  Serious: No
  Sender: FDA-Public Use
  Company Number: None

PATIENT
  Sex: Male
  Weight: 97.5234 kg

DRUGS (1)
  1. NITRO QUICK  MFG  ETHEX [Suspect]
     Indication: CHEST PAIN
     Dosage: ONE TAB SL Q 5 MIN PRN X3
     Route: 060

REACTIONS (1)
  - DRUG INEFFECTIVE [None]
